FAERS Safety Report 6032908-8 (Version None)
Quarter: 2009Q1

REPORT INFORMATION
  Report Type: 
  Country: None (occurrence: None)
  Receive Date: 20090107
  Receipt Date: 20090107
  Transmission Date: 20090719
  Serious: Yes (Hospitalization)
  Sender: FDA-Public Use
  Company Number: None

PATIENT
  Age: 60 Year
  Sex: Male
  Weight: 97.977 kg

DRUGS (1)
  1. NAPROXEN [Suspect]
     Indication: BACK PAIN

REACTIONS (1)
  - TRANSIENT ISCHAEMIC ATTACK [None]
